FAERS Safety Report 5294568-3 (Version None)
Quarter: 2007Q2

REPORT INFORMATION
  Report Type: 
  Country: None (occurrence: None)
  Receive Date: 20070409
  Receipt Date: 20070409
  Transmission Date: 20071010
  Serious: Yes (Life-Threatening, Hospitalization)
  Sender: FDA-Public Use
  Company Number: None

PATIENT
  Age: 43 Year
  Sex: Female
  Weight: 44.4525 kg

DRUGS (4)
  1. ZELNORM [Suspect]
     Indication: CONSTIPATION
     Dosage: 1 TABLET 3 -4 TIMES A DAY DAILY PO
     Route: 048
     Dates: start: 20040901, end: 20070406
  2. ZELNORM [Suspect]
     Indication: DIARRHOEA
     Dosage: 1 TABLET 3 -4 TIMES A DAY DAILY PO
     Route: 048
     Dates: start: 20040901, end: 20070406
  3. ZELNORM [Suspect]
     Indication: GASTROOESOPHAGEAL REFLUX DISEASE
     Dosage: 1 TABLET 3 -4 TIMES A DAY DAILY PO
     Route: 048
     Dates: start: 20040901, end: 20070406
  4. ZELNORM [Suspect]
     Indication: IRRITABLE BOWEL SYNDROME
     Dosage: 1 TABLET 3 -4 TIMES A DAY DAILY PO
     Route: 048
     Dates: start: 20040901, end: 20070406

REACTIONS (18)
  - ABDOMINAL PAIN UPPER [None]
  - BLOOD GLUCOSE INCREASED [None]
  - BREAST MASS [None]
  - CARDIAC MURMUR [None]
  - CHEST PAIN [None]
  - CONSTIPATION [None]
  - DIZZINESS [None]
  - DYSPHONIA [None]
  - FATIGUE [None]
  - FOOD AVERSION [None]
  - GASTROINTESTINAL DISORDER [None]
  - GASTROINTESTINAL MOTILITY DISORDER [None]
  - HYPOTENSION [None]
  - IMPAIRED HEALING [None]
  - INFECTION IN AN IMMUNOCOMPROMISED HOST [None]
  - PAIN [None]
  - PHARYNGOLARYNGEAL PAIN [None]
  - SURGERY [None]
